FAERS Safety Report 9049256 (Version 1)
Quarter: 2012Q4

REPORT INFORMATION
  Report Type: Spontaneous
  Country: GB (occurrence: None)
  Receive Date: 20120905
  Receipt Date: 20120905
  Transmission Date: 20130627
  Serious: Yes (Other)
  Sender: FDA-Public Use
  Company Number: 2012-2510

PATIENT
  Age: 47 Year
  Sex: Male

DRUGS (1)
  1. SOMATULINE AUTOGEL [Suspect]
     Indication: NEUROENDOCRINE TUMOUR
     Dosage: (1 in 28 D)
     Route: 058

REACTIONS (11)
  - Hepatic enzyme increased [None]
  - Steatorrhoea [None]
  - Fatigue [None]
  - Abdominal distension [None]
  - Dizziness [None]
  - Flushing [None]
  - Aspartate aminotransferase increased [None]
  - Alanine aminotransferase increased [None]
  - Blood alkaline phosphatase increased [None]
  - Gamma-glutamyltransferase increased [None]
  - Abdominal pain [None]
